FAERS Safety Report 7757231-2 (Version None)
Quarter: 2011Q3

REPORT INFORMATION
  Report Type: 
  Country: None (occurrence: None)
  Receive Date: 20110916
  Receipt Date: 20110915
  Transmission Date: 20111222
  Serious: Yes (Death)
  Sender: FDA-Public Use
  Company Number: BE-ABBOTT-11P-013-0849269-00

PATIENT
  Sex: Male
  Weight: 60 kg

DRUGS (5)
  1. NEORECORMON [Concomitant]
     Indication: PRODUCT USED FOR UNKNOWN INDICATION
  2. CALCIUM CARBONATE [Concomitant]
     Indication: PRODUCT USED FOR UNKNOWN INDICATION
  3. ESTRACYT [Concomitant]
     Indication: PRODUCT USED FOR UNKNOWN INDICATION
     Dates: start: 20080601
  4. LEUPROLIDE ACETATE [Suspect]
     Indication: PROSTATE CANCER
     Dates: start: 20070223
  5. OMEPRAZOLE [Suspect]
     Indication: PRODUCT USED FOR UNKNOWN INDICATION

REACTIONS (3)
  - METASTASES TO LIVER [None]
  - PROSTATE CANCER [None]
  - HEPATIC FAILURE [None]
